FAERS Safety Report 5511796-X (Version None)
Quarter: 2007Q4

REPORT INFORMATION
  Report Type: 
  Country: None (occurrence: None)
  Receive Date: 20071109
  Receipt Date: 20071030
  Transmission Date: 20080405
  Serious: Yes (Disabling, Other)
  Sender: FDA-Public Use
  Company Number: ES-PFIZER INC-2007090945

PATIENT
  Age: 28 Year
  Sex: Male

DRUGS (3)
  1. ZELDOX (CAPSULES) [Suspect]
     Indication: SCHIZOAFFECTIVE DISORDER
  2. LORMETAZEPAM [Concomitant]
  3. LANSOPRAZOLE [Concomitant]

REACTIONS (1)
  - TIC [None]
